FAERS Safety Report 8245873-X (Version None)
Quarter: 2012Q1

REPORT INFORMATION
  Report Type: 
  Country: None (occurrence: None)
  Receive Date: 20120327
  Receipt Date: 20120319
  Transmission Date: 20120608
  Serious: Yes (Hospitalization)
  Sender: FDA-Public Use
  Company Number: DKLU1077734

PATIENT
  Age: 13 Month
  Sex: Female
  Weight: 9.6 kg

DRUGS (3)
  1. TOPAMAX [Concomitant]
  2. PHENOBARBITAL TAB [Concomitant]
  3. SABRIL [Suspect]
     Indication: COMPLEX PARTIAL SEIZURES
     Dosage: 600 MG, 2 IN, ORAL
     Route: 048
     Dates: start: 20110217

REACTIONS (1)
  - BRAIN OPERATION [None]
